FAERS Safety Report 10889848 (Version 7)
Quarter: 2015Q2

REPORT INFORMATION
  Report Type: Spontaneous
  Country: US (occurrence: US)
  Receive Date: 20150305
  Receipt Date: 20150609
  Transmission Date: 20150821
  Serious: Yes (Hospitalization, Disabling, Other)
  Sender: FDA-Public Use
  Company Number: US-009507513-1107USA01059

PATIENT
  Sex: Female
  Weight: 70.3 kg

DRUGS (3)
  1. BONIVA [Suspect]
     Active Substance: IBANDRONATE SODIUM
     Indication: BONE DENSITY DECREASED
     Dosage: 150 MG, UNK
     Route: 048
     Dates: start: 2006, end: 2008
  2. FOSAMAX [Suspect]
     Active Substance: ALENDRONATE SODIUM
     Indication: BONE DENSITY DECREASED
     Dosage: 70 MG, UNK
     Route: 048
     Dates: start: 20010103, end: 2006
  3. FOSAMAX [Suspect]
     Active Substance: ALENDRONATE SODIUM
     Indication: OSTEOPENIA

REACTIONS (33)
  - Bone disorder [Not Recovered/Not Resolved]
  - Post procedural haematoma [Recovered/Resolved]
  - Pain [Not Recovered/Not Resolved]
  - Rib fracture [Unknown]
  - Back pain [Not Recovered/Not Resolved]
  - Bone disorder [Unknown]
  - Dementia [Not Recovered/Not Resolved]
  - Open reduction of fracture [Unknown]
  - Fall [Unknown]
  - Intervertebral disc protrusion [Unknown]
  - Fracture nonunion [Unknown]
  - Pubis fracture [Recovering/Resolving]
  - Spinal decompression [Unknown]
  - Spondylolisthesis [Unknown]
  - Spinal disorder [Unknown]
  - Intervertebral disc degeneration [Not Recovered/Not Resolved]
  - Femur fracture [Recovered/Resolved]
  - Anaemia postoperative [Unknown]
  - Gastrooesophageal reflux disease [Not Recovered/Not Resolved]
  - Intramedullary rod insertion [Unknown]
  - Intramedullary rod insertion [Unknown]
  - Spinal fusion surgery [Unknown]
  - Confusional state [Unknown]
  - Fall [Unknown]
  - Fractured sacrum [Recovering/Resolving]
  - Intracranial aneurysm [Not Recovered/Not Resolved]
  - Adenotonsillectomy [Unknown]
  - Tenderness [Unknown]
  - Spinal fusion surgery [Unknown]
  - Femur fracture [Unknown]
  - Atrial fibrillation [Not Recovered/Not Resolved]
  - Urinary incontinence [Not Recovered/Not Resolved]
  - Peripheral vascular disorder [Not Recovered/Not Resolved]

NARRATIVE: CASE EVENT DATE: 200109
